FAERS Safety Report 6614244-1 (Version None)
Quarter: 2010Q1

REPORT INFORMATION
  Report Type: 
  Country: None (occurrence: None)
  Receive Date: 20100303
  Receipt Date: 20100303
  Transmission Date: 20100710
  Serious: Yes (Hospitalization)
  Sender: FDA-Public Use
  Company Number: None

PATIENT
  Age: 59 Year
  Sex: Male
  Weight: 88 kg

DRUGS (2)
  1. HEPARIN SODIUM 1,000 UNITS IN SODIUM CHLORIDE 0.9% [Suspect]
     Indication: VASCULAR OPERATION
     Dosage: 500 UNITS PER HOUR IV
     Route: 042
     Dates: start: 20090227, end: 20090228
  2. ALTEPLASE [Suspect]
     Indication: VASCULAR OPERATION
     Dosage: 1 MG PER HOUR IV
     Route: 042
     Dates: start: 20090227, end: 20090228

REACTIONS (1)
  - HAEMATOMA [None]
